FAERS Safety Report 18926547 (Version 1)
Quarter: 2021Q1

REPORT INFORMATION
  Report Type: Spontaneous
  Country: JP (occurrence: JP)
  Receive Date: 20210223
  Receipt Date: 20210223
  Transmission Date: 20210420
  Serious: Yes (Other)
  Sender: FDA-Public Use
  Company Number: JP-ABBVIE-21K-087-3785596-00

PATIENT

DRUGS (1)
  1. IMBRUVICA [Suspect]
     Active Substance: IBRUTINIB
     Indication: CHRONIC LYMPHOCYTIC LEUKAEMIA REFRACTORY
     Dosage: DOSE UNKNOWN
     Route: 048

REACTIONS (3)
  - Leukostasis syndrome [Unknown]
  - Hypoglycaemia [Recovered/Resolved]
  - Oxygen saturation decreased [Recovered/Resolved]
